FAERS Safety Report 9556961 (Version 1)
Quarter: 2013Q3

REPORT INFORMATION
  Report Type: Spontaneous
  Country: US (occurrence: None)
  Receive Date: 20130726
  Receipt Date: 20130726
  Transmission Date: 20140515
  Serious: Yes (Hospitalization)
  Sender: FDA-Public Use
  Company Number: UTC-026682

PATIENT
  Sex: Female
  Weight: 88.2 kg

DRUGS (3)
  1. REMODULIN [Suspect]
     Indication: PULMONARY ARTERIAL HYPERTENSION
     Dosage: 84.24 UG/KG(0.0585 UG/KG 1 IN 1 MIN)
     Route: 041
     Dates: start: 20091219
  2. REVATIO(SILDENAFIL CITRATE) [Concomitant]
  3. COUMADIN(WARFARIN SODIUM) [Concomitant]

REACTIONS (1)
  - Device related infection [None]
